FAERS Safety Report 10237145 (Version 1)
Quarter: 2014Q2

REPORT INFORMATION
  Report Type: Spontaneous
  Country: US (occurrence: US)
  Receive Date: 20140613
  Receipt Date: 20140613
  Transmission Date: 20141212
  Serious: Yes (Other)
  Sender: FDA-Public Use
  Company Number: US-GLAXOSMITHKLINE-A1076439A

PATIENT
  Age: 44 Year
  Sex: Female

DRUGS (4)
  1. REQUIP XL [Suspect]
     Indication: RESTLESS LEGS SYNDROME
     Dosage: 10MG PER DAY
     Route: 048
  2. PAXIL CR [Concomitant]
  3. GLIPIZIDE [Concomitant]
  4. KLONOPIN [Concomitant]

REACTIONS (2)
  - Multiple sclerosis [Not Recovered/Not Resolved]
  - Hypokinesia [Not Recovered/Not Resolved]
